FAERS Safety Report 15395911 (Version 53)
Quarter: 2023Q1

REPORT INFORMATION
  Report Type: Report from Study
  Country: GB (occurrence: GB)
  Receive Date: 20180918
  Receipt Date: 20230321
  Transmission Date: 20230417
  Serious: Yes (Death, Hospitalization, Other)
  Sender: FDA-Public Use
  Company Number: GB-ROCHE-1745230

PATIENT
  Age: 67 Year
  Sex: Female

DRUGS (77)
  1. EXEMESTANE [Suspect]
     Active Substance: EXEMESTANE
     Indication: HER2 positive breast cancer
     Dosage: UNK
     Route: 065
  2. EXEMESTANE [Suspect]
     Active Substance: EXEMESTANE
     Indication: Breast cancer metastatic
     Dosage: 25 MILLIGRAM, QD
     Route: 048
     Dates: start: 20160531, end: 20160610
  3. EXEMESTANE [Suspect]
     Active Substance: EXEMESTANE
     Indication: Breast cancer metastatic
     Dosage: LAST DOSE ON 12/JUL/2016
     Route: 048
     Dates: start: 20160712
  4. EXEMESTANE [Suspect]
     Active Substance: EXEMESTANE
     Dosage: QD (600 MG FROM 31-MAY-2016 TO 15-NOV-2016)
     Route: 048
     Dates: start: 20160712
  5. EXEMESTANE [Suspect]
     Active Substance: EXEMESTANE
     Dosage: 25 MG, 1X/DAY
     Route: 048
     Dates: start: 20160531, end: 20160610
  6. EXEMESTANE [Suspect]
     Active Substance: EXEMESTANE
     Dosage: UNK
     Route: 048
     Dates: end: 20160712
  7. EXEMESTANE [Suspect]
     Active Substance: EXEMESTANE
     Dosage: UNK
     Route: 048
     Dates: end: 20160712
  8. EXEMESTANE [Suspect]
     Active Substance: EXEMESTANE
     Indication: HER2 positive breast cancer
     Dosage: UNK
     Route: 065
  9. TAMOXIFEN [Suspect]
     Active Substance: TAMOXIFEN
     Indication: HER2 positive breast cancer
     Dosage: 600 MILLIGRAM
     Route: 048
  10. TAMOXIFEN [Suspect]
     Active Substance: TAMOXIFEN
     Indication: Breast cancer metastatic
     Dosage: 20 MILLIGRAM, QD
     Route: 048
     Dates: start: 20160712, end: 20160802
  11. TAMOXIFEN [Suspect]
     Active Substance: TAMOXIFEN
     Dosage: 600 MILLIGRAM, QW
     Route: 048
     Dates: start: 20160712, end: 20160802
  12. TAMOXIFEN [Suspect]
     Active Substance: TAMOXIFEN
     Dosage: 600 MILLIGRAM (FROM 31-MAY-2016 TO 15-NOV-2016)
     Route: 048
  13. TAMOXIFEN CITRATE [Suspect]
     Active Substance: TAMOXIFEN CITRATE
     Indication: HER2 positive breast cancer
     Dosage: 600 MILLIGRAM, Q3W
     Route: 065
     Dates: start: 20160712, end: 20160802
  14. TAMOXIFEN CITRATE [Suspect]
     Active Substance: TAMOXIFEN CITRATE
     Indication: HER2 positive breast cancer
     Dosage: 600 MILLIGRAM, Q3W (ORAL SOLUTION )
     Route: 065
  15. TAMOXIFEN CITRATE [Suspect]
     Active Substance: TAMOXIFEN CITRATE
     Indication: HER2 positive breast cancer
     Dosage: 20 MILLIGRAM, QD
     Route: 065
     Dates: start: 20160712, end: 20160802
  16. TAMOXIFEN CITRATE [Suspect]
     Active Substance: TAMOXIFEN CITRATE
     Indication: Breast cancer metastatic
     Dosage: TIME INT. BETW BEGIN OF DRUG ADMIN N END OF RXN
     Route: 048
     Dates: start: 20160712, end: 20160802
  17. TAMOXIFEN CITRATE [Suspect]
     Active Substance: TAMOXIFEN CITRATE
     Indication: HER2 positive breast cancer
     Dosage: 600 MILLIGRAM, Q3W (STRENGTH 2 MG/ML)
     Route: 065
  18. CAPECITABINE [Suspect]
     Active Substance: CAPECITABINE
     Indication: Breast cancer metastatic
     Dosage: 1500 MG,
     Route: 048
     Dates: start: 20161122, end: 20161213
  19. CAPECITABINE [Suspect]
     Active Substance: CAPECITABINE
     Indication: HER2 positive breast cancer
     Dosage: 1500 MILLIGRAM
     Route: 042
     Dates: start: 20161122, end: 20161213
  20. CAPECITABINE [Suspect]
     Active Substance: CAPECITABINE
     Dosage: 1300 MILLIGRAM, BID
     Route: 048
     Dates: start: 20161213, end: 20161216
  21. CAPECITABINE [Suspect]
     Active Substance: CAPECITABINE
     Dosage: 1000 MILLIGRAM
     Route: 048
  22. CAPECITABINE [Suspect]
     Active Substance: CAPECITABINE
     Dosage: 1000 MILLIGRAM, Q4D
     Route: 048
     Dates: start: 20161122, end: 20161213
  23. CAPECITABINE [Suspect]
     Active Substance: CAPECITABINE
     Dosage: 1000 MILLIGRAM
     Route: 048
     Dates: start: 20161213, end: 20161216
  24. CAPECITABINE [Suspect]
     Active Substance: CAPECITABINE
     Dosage: 1300 MILLIGRAM
     Route: 048
     Dates: start: 20161213, end: 20161216
  25. CAPECITABINE [Suspect]
     Active Substance: CAPECITABINE
     Dosage: 1000 MILLIGRAM, Q4D
     Route: 048
  26. CAPECITABINE [Suspect]
     Active Substance: CAPECITABINE
     Dosage: 600 MILLIGRAM (ROM 31-MAY-2016 TO 15-NOV-2016)
     Route: 048
  27. TRASTUZUMAB [Suspect]
     Active Substance: TRASTUZUMAB
     Indication: HER2 positive breast cancer
     Dosage: 600 MG, EVERY 3 WEEKS
     Route: 058
     Dates: start: 20151124, end: 20151221
  28. TRASTUZUMAB [Suspect]
     Active Substance: TRASTUZUMAB
     Indication: Breast cancer metastatic
     Dosage: 600 MILLIGRAM, PER 3 WEEKS
     Route: 058
     Dates: start: 20160531
  29. TRASTUZUMAB [Suspect]
     Active Substance: TRASTUZUMAB
     Dosage: 600 MILLIGRAM, PER 3 WEEKS
     Route: 058
     Dates: start: 20160531, end: 20161115
  30. TRASTUZUMAB [Suspect]
     Active Substance: TRASTUZUMAB
     Dosage: 600 MILLIGRAM (FROM 31-MAY-2016 TO 15-NOV-2016)
     Route: 058
  31. PACLITAXEL [Suspect]
     Active Substance: PACLITAXEL
     Indication: HER2 positive breast cancer
     Dosage: UNK
     Route: 065
  32. PACLITAXEL [Suspect]
     Active Substance: PACLITAXEL
     Indication: Breast cancer metastatic
     Dosage: 141 MILLIGRAM, MONTHLY
     Route: 042
     Dates: start: 20151124, end: 20151221
  33. PACLITAXEL [Suspect]
     Active Substance: PACLITAXEL
     Dosage: 141 MG, UNK
     Route: 042
     Dates: start: 20161122
  34. PACLITAXEL [Suspect]
     Active Substance: PACLITAXEL
     Dosage: 141 MILLIGRAM
     Route: 042
     Dates: start: 20161124
  35. PACLITAXEL [Suspect]
     Active Substance: PACLITAXEL
     Dosage: 141 MILLIGRAM, MONTHLY
     Route: 042
     Dates: start: 20151124, end: 20151221
  36. PACLITAXEL [Suspect]
     Active Substance: PACLITAXEL
     Dosage: UNK (600 MG FROM 31-MAY-2016 TO 15-NOV-201)
     Route: 065
     Dates: start: 20161124
  37. PACLITAXEL [Suspect]
     Active Substance: PACLITAXEL
     Indication: Product used for unknown indication
     Dosage: START DATE: 24-NOV-2016
     Route: 065
  38. ADALIMUMAB [Suspect]
     Active Substance: ADALIMUMAB
     Indication: HER2 positive breast cancer
     Dosage: 40 MILLIGRAM, Q2W
     Route: 058
  39. ADALIMUMAB [Suspect]
     Active Substance: ADALIMUMAB
     Dosage: 40 MG, Q2W
     Route: 058
     Dates: start: 20151124
  40. ADALIMUMAB [Suspect]
     Active Substance: ADALIMUMAB
     Dosage: 600 MILLIGRAM (FROM 31-MAY-2016 TO 15-NOV-2016)
     Route: 058
  41. TAMOXIFEN CITRATE [Suspect]
     Active Substance: TAMOXIFEN CITRATE
     Indication: Breast cancer metastatic
     Dosage: TIME INT. BETW BEGIN OF DRUG ADMIN N END OF RXN
     Route: 048
     Dates: start: 20160712, end: 20160802
  42. TAMOXIFEN CITRATE [Suspect]
     Active Substance: TAMOXIFEN CITRATE
     Indication: HER2 positive breast cancer
     Dosage: 600 MILLIGRAM, Q3W (600 MILLIGRAM/3WEEK)
     Route: 048
  43. CARBOPLATIN [Suspect]
     Active Substance: CARBOPLATIN
     Indication: Triple negative breast cancer
     Dosage: UNK
     Route: 065
  44. EPIRUBICIN [Suspect]
     Active Substance: EPIRUBICIN
     Indication: Triple negative breast cancer
     Dosage: UNK
     Route: 065
  45. HYALURONIDASE (HUMAN RECOMBINANT) [Suspect]
     Active Substance: HYALURONIDASE (HUMAN RECOMBINANT)
     Indication: HER2 positive breast cancer
     Dosage: 600 MILLIGRAM, EVERY 3 WEEKS
     Route: 058
     Dates: start: 20151124, end: 20151221
  46. HYALURONIDASE (HUMAN RECOMBINANT) [Suspect]
     Active Substance: HYALURONIDASE (HUMAN RECOMBINANT)
     Dosage: 600 MILLIGRAM, EVERY 3 WEEKS
     Route: 058
     Dates: start: 20160531, end: 20161115
  47. HYALURONIDASE (HUMAN RECOMBINANT) [Suspect]
     Active Substance: HYALURONIDASE (HUMAN RECOMBINANT)
     Dosage: UNK
     Route: 065
  48. HYALURONATE SODIUM [Suspect]
     Active Substance: HYALURONATE SODIUM
     Indication: HER2 positive breast cancer
     Dosage: 600 MILLIGRAM, Q3W
     Route: 058
     Dates: start: 20151124, end: 20151221
  49. HYALURONATE SODIUM [Suspect]
     Active Substance: HYALURONATE SODIUM
     Indication: Breast cancer metastatic
     Dosage: 600 MILLIGRAM, Q3W
     Route: 058
     Dates: start: 20160531
  50. IMRALDI [Suspect]
     Active Substance: ADALIMUMAB
     Indication: Colitis ulcerative
     Dosage: 160 MG, WEEK ZERO, START DATE: 01-APR-2021
     Route: 058
  51. IMRALDI [Suspect]
     Active Substance: ADALIMUMAB
     Dosage: 80 MILLIGRAM, WEEK TWO
     Route: 058
  52. IMRALDI [Suspect]
     Active Substance: ADALIMUMAB
     Dosage: 40 MG, Q2W,(FROM WEEK FOUR (MAINTENANCE)
     Route: 058
  53. HYALURONIDASE (HUMAN RECOMBINANT) [Suspect]
     Active Substance: HYALURONIDASE (HUMAN RECOMBINANT)
     Indication: Product used for unknown indication
     Dosage: 1UNK, Q3W
     Route: 058
     Dates: start: 20151124, end: 20151221
  54. HYALURONIDASE (HUMAN RECOMBINANT) [Suspect]
     Active Substance: HYALURONIDASE (HUMAN RECOMBINANT)
     Dosage: 1 UNK, Q3W
     Route: 058
     Dates: start: 20160531
  55. HYALURONIDASE (HUMAN RECOMBINANT) [Suspect]
     Active Substance: HYALURONIDASE (HUMAN RECOMBINANT)
     Dosage: 600 MILLIGRAM, Q3W
     Route: 058
     Dates: start: 20160531, end: 20161115
  56. PEGVORHYALURONIDASE ALFA [Suspect]
     Active Substance: PEGVORHYALURONIDASE ALFA
     Indication: HER2 positive breast cancer
     Dosage: UNK
     Route: 065
     Dates: start: 20160531
  57. PEGVORHYALURONIDASE ALFA [Suspect]
     Active Substance: PEGVORHYALURONIDASE ALFA
     Dosage: 600 MILLIGRAM, Q3W
     Route: 065
     Dates: start: 20151124
  58. CYCLOPHOSPHAMIDE [Suspect]
     Active Substance: CYCLOPHOSPHAMIDE
     Indication: Triple negative breast cancer
     Dosage: UNK
     Route: 065
  59. DOXORUBICIN [Suspect]
     Active Substance: DOXORUBICIN
     Indication: Triple negative breast cancer
     Dosage: UNK
     Route: 065
  60. ERIBULIN MESYLATE [Suspect]
     Active Substance: ERIBULIN MESYLATE
     Indication: Triple negative breast cancer
     Dosage: UNK
     Route: 065
  61. FLUOROURACIL [Suspect]
     Active Substance: FLUOROURACIL
     Indication: Triple negative breast cancer
     Dosage: UNK
     Route: 065
  62. GEMCITABINE [Suspect]
     Active Substance: GEMCITABINE
     Indication: Triple negative breast cancer
     Dosage: UNK
     Route: 065
  63. CALCIUM CARBONATE\CHOLECALCIFEROL [Concomitant]
     Active Substance: CALCIUM CARBONATE\CHOLECALCIFEROL
     Indication: Product used for unknown indication
     Dosage: 1.5 DOSAGE FORM, QD
     Route: 048
     Dates: start: 20101221, end: 201511
  64. CALCIUM CARBONATE\CHOLECALCIFEROL [Concomitant]
     Active Substance: CALCIUM CARBONATE\CHOLECALCIFEROL
     Dosage: 1 DOSAGE FORM, QD
     Route: 048
     Dates: start: 20101221
  65. CALCIUM CARBONATE\CHOLECALCIFEROL [Concomitant]
     Active Substance: CALCIUM CARBONATE\CHOLECALCIFEROL
     Dosage: UNK
     Route: 065
     Dates: start: 20101221
  66. CALCIUM CARBONATE\CHOLECALCIFEROL [Concomitant]
     Active Substance: CALCIUM CARBONATE\CHOLECALCIFEROL
     Dosage: 2 GRAM
     Route: 048
     Dates: start: 20101221, end: 201511
  67. CALCIUM CARBONATE\CHOLECALCIFEROL [Concomitant]
     Active Substance: CALCIUM CARBONATE\CHOLECALCIFEROL
     Dosage: 1.5 GRAM, QD
     Route: 065
     Dates: start: 20101221, end: 201511
  68. ENOXAPARIN [Concomitant]
     Active Substance: ENOXAPARIN
     Indication: Embolism venous
     Dosage: 20 MILLIGRAMS, DAILY
     Route: 058
     Dates: start: 20160104, end: 20160106
  69. ENOXAPARIN [Concomitant]
     Active Substance: ENOXAPARIN
     Indication: Thrombosis prophylaxis
     Dosage: 20 MILLIGRAM, QD
     Route: 058
     Dates: start: 20160106
  70. ENOXAPARIN [Concomitant]
     Active Substance: ENOXAPARIN
     Indication: Embolism venous
     Dosage: ALSO RECEIVED 600MG FROM 31-05-2016 TO 15-11-2016
     Route: 065
  71. OMEPRAZOLE [Concomitant]
     Active Substance: OMEPRAZOLE
     Indication: Product used for unknown indication
     Dosage: 2 GRAM
     Route: 048
     Dates: start: 20101221
  72. OMEPRAZOLE [Concomitant]
     Active Substance: OMEPRAZOLE
     Dosage: 1 DOSAGE FORM, QD
     Route: 048
  73. OMEPRAZOLE [Concomitant]
     Active Substance: OMEPRAZOLE
     Dosage: 20 MILLIGRAM, QD
     Route: 048
     Dates: end: 20170530
  74. OMEPRAZOLE [Concomitant]
     Active Substance: OMEPRAZOLE
     Dosage: 20 MG, 1X/DAY
     Route: 048
     Dates: start: 20170530
  75. CHOLECALCIFEROL [Concomitant]
     Active Substance: CHOLECALCIFEROL
     Indication: Product used for unknown indication
     Dosage: 2 GRAM (START DATE;21-DEC-2010)
     Route: 048
     Dates: start: 20101221, end: 201511
  76. CHOLECALCIFEROL [Concomitant]
     Active Substance: CHOLECALCIFEROL
     Dosage: 2 GRAM
     Route: 048
     Dates: start: 20101221
  77. CHOLECALCIFEROL [Concomitant]
     Active Substance: CHOLECALCIFEROL
     Dosage: 1.5 GRAM, QD
     Route: 048
     Dates: start: 20101221

REACTIONS (57)
  - Death [Fatal]
  - Ascites [Fatal]
  - Hypoalbuminaemia [Fatal]
  - Dyspnoea [Fatal]
  - Neutrophil count [Fatal]
  - Hypertension [Fatal]
  - Ill-defined disorder [Fatal]
  - Cerebral haemorrhage [Fatal]
  - Alanine aminotransferase decreased [Fatal]
  - Hypokalaemia [Fatal]
  - Urinary tract infection [Fatal]
  - Constipation [Fatal]
  - Lymphopenia [Fatal]
  - Rectal haemorrhage [Fatal]
  - C-reactive protein increased [Fatal]
  - Alanine aminotransferase increased [Fatal]
  - Sensory disturbance [Fatal]
  - Balance disorder [Fatal]
  - Sensory loss [Fatal]
  - Crohn^s disease [Fatal]
  - Colitis ulcerative [Fatal]
  - Asthenia [Fatal]
  - Vomiting [Fatal]
  - Blood glucose increased [Fatal]
  - Aspartate aminotransferase increased [Fatal]
  - Blood bilirubin increased [Fatal]
  - Blood urea increased [Fatal]
  - Pyrexia [Fatal]
  - Blood creatinine increased [Fatal]
  - Hypernatraemia [Fatal]
  - White blood cell count increased [Fatal]
  - Pain [Fatal]
  - Nausea [Fatal]
  - Fatigue [Fatal]
  - Agitation [Fatal]
  - Neutrophil count increased [Fatal]
  - Crying [Fatal]
  - Injection site pain [Fatal]
  - Diarrhoea [Fatal]
  - Protein total decreased [Fatal]
  - Blood phosphorus increased [Fatal]
  - Blood alkaline phosphatase increased [Fatal]
  - Musculoskeletal stiffness [Fatal]
  - Depressed mood [Fatal]
  - Sinusitis [Fatal]
  - Insomnia [Fatal]
  - Back pain [Fatal]
  - Muscle twitching [Fatal]
  - Malaise [Fatal]
  - Haemoglobin decreased [Fatal]
  - Tremor [Fatal]
  - Abdominal pain upper [Fatal]
  - Headache [Fatal]
  - Neck pain [Fatal]
  - Irritability [Fatal]
  - Multiple-drug resistance [Fatal]
  - Product administered at inappropriate site [Fatal]

NARRATIVE: CASE EVENT DATE: 20151110
